FAERS Safety Report 25484656 (Version 1)
Quarter: 2025Q2

REPORT INFORMATION
  Report Type: Spontaneous
  Country: US (occurrence: None)
  Receive Date: 20250627
  Receipt Date: 20250627
  Transmission Date: 20250716
  Serious: Yes (Hospitalization)
  Sender: FDA-CTU
  Company Number: None

PATIENT
  Sex: Female
  Weight: 66.6 kg

DRUGS (2)
  1. TADALAFIL [Suspect]
     Active Substance: TADALAFIL
     Indication: Pulmonary arterial hypertension
     Dosage: 40 MG DAILY ORAL
     Route: 048
     Dates: start: 20240518
  2. WINREVAIR [Suspect]
     Active Substance: SOTATERCEPT-CSRK
     Indication: Pulmonary arterial hypertension
     Dosage: 1 ML EVERY 3 WEEKS SUBCUTANEOUS
     Route: 058
     Dates: start: 20250318

REACTIONS (2)
  - Mental status changes [None]
  - Hypercalcaemia [None]
